FAERS Safety Report 8928901 (Version 1)
Quarter: 2012Q4

REPORT INFORMATION
  Report Type: 
  Country: US (occurrence: US)
  Receive Date: 20121128
  Receipt Date: 20121128
  Transmission Date: 20130627
  Serious: Yes (Hospitalization)
  Sender: FDA-Public Use
  Company Number: US-AMGEN-USASP2012055180

PATIENT
  Age: 43 Year
  Sex: Female

DRUGS (1)
  1. PROCRIT [Suspect]
     Indication: SIDEROBLASTIC ANAEMIA
     Dosage: 20000 unit, qwk
     Dates: start: 2002

REACTIONS (2)
  - Factor V Leiden mutation [Recovered/Resolved]
  - Lacunar infarction [Recovered/Resolved]
